FAERS Safety Report 5296855-1 (Version None)
Quarter: 2007Q2

REPORT INFORMATION
  Report Type: 
  Country: None (occurrence: None)
  Receive Date: 20070413
  Receipt Date: 20070404
  Transmission Date: 20071010
  Serious: Yes (Death)
  Sender: FDA-Public Use
  Company Number: FR-PFIZER INC-2007027881

PATIENT
  Age: 72 Year
  Sex: Female

DRUGS (2)
  1. TAHOR [Suspect]
  2. VOLTAREN [Concomitant]

REACTIONS (2)
  - AUTOIMMUNE HEPATITIS [None]
  - JAUNDICE [None]
